FAERS Safety Report 23303636 (Version 1)
Quarter: 2023Q4

REPORT INFORMATION
  Report Type: Spontaneous
  Country: US (occurrence: US)
  Receive Date: 20231215
  Receipt Date: 20231215
  Transmission Date: 20240109
  Serious: Yes (Hospitalization)
  Sender: FDA-Public Use
  Company Number: US-BRISTOL-MYERS SQUIBB COMPANY-2023-182130

PATIENT
  Age: 69 Year
  Sex: Male

DRUGS (1)
  1. ONUREG [Suspect]
     Active Substance: AZACITIDINE
     Indication: Product used for unknown indication
     Dosage: FREQUENCY: ONE TABLET ONCE DAILY ON DAYS 1-14 OF A 28 DAY CYCLE.
     Route: 048

REACTIONS (1)
  - Asthenia [Recovering/Resolving]
